FAERS Safety Report 18282505 (Version 3)
Quarter: 2020Q4

REPORT INFORMATION
  Report Type: Spontaneous
  Country: SE (occurrence: SE)
  Receive Date: 20200918
  Receipt Date: 20201020
  Transmission Date: 20210113
  Serious: Yes (Other)
  Sender: FDA-Public Use
  Company Number: SE-PFIZER INC-2020357094

PATIENT
  Age: 64 Year
  Sex: Female
  Weight: 69 kg

DRUGS (1)
  1. OESTRING [Suspect]
     Active Substance: ESTRADIOL
     Indication: PROLAPSE
     Dosage: UNK

REACTIONS (5)
  - Off label use [Unknown]
  - Vaginal haemorrhage [Unknown]
  - Cervical polyp [Recovered/Resolved]
  - Product use in unapproved indication [Unknown]
  - Wound haemorrhage [Recovered/Resolved]
